FAERS Safety Report 5347712-3 (Version None)
Quarter: 2007Q2

REPORT INFORMATION
  Report Type: 
  Country: None (occurrence: None)
  Receive Date: 20070606
  Receipt Date: 20070531
  Transmission Date: 20071010
  Serious: Yes (Hospitalization, Other)
  Sender: FDA-Public Use
  Company Number: AU-AVENTIS-200714914GDDC

PATIENT
  Age: 68 Year
  Sex: Female

DRUGS (2)
  1. ARAVA [Suspect]
     Indication: RHEUMATOID ARTHRITIS
     Route: 048
     Dates: start: 20020101
  2. PARACETAMOL [Concomitant]
     Dosage: DOSE: UNK

REACTIONS (2)
  - SYNOVIAL CYST [None]
  - SYNOVIAL RUPTURE [None]
